FAERS Safety Report 11482463 (Version 1)
Quarter: 2015Q3

REPORT INFORMATION
  Report Type: Spontaneous
  Country: CA (occurrence: CA)
  Receive Date: 20150909
  Receipt Date: 20150909
  Transmission Date: 20151125
  Serious: Yes (Hospitalization, Other)
  Sender: FDA-Public Use
  Company Number: CA-BEH-2015053730

PATIENT
  Sex: Male

DRUGS (1)
  1. HIZENTRA [Suspect]
     Active Substance: HUMAN IMMUNOGLOBULIN G
     Dosage: DUE FOR NEXT INFUSION 01-SEP-2015. BEEN TAKING FOR 2 MONTHS
     Dates: start: 20150825

REACTIONS (1)
  - Pneumonia [Unknown]
